FAERS Safety Report 10568281 (Version 1)
Quarter: 2014Q4

REPORT INFORMATION
  Report Type: Spontaneous
  Country: US (occurrence: None)
  Receive Date: 20141105
  Receipt Date: 20141105
  Transmission Date: 20150529
  Serious: Yes (Hospitalization)
  Sender: FDA-Public Use
  Company Number: None

PATIENT
  Age: 30 Year
  Sex: Female
  Weight: 46.3 kg

DRUGS (1)
  1. NOLVADEX [Suspect]
     Active Substance: TAMOXIFEN CITRATE
     Dates: start: 20141006, end: 20141006

REACTIONS (2)
  - Dehydration [None]
  - Dyspnoea [None]

NARRATIVE: CASE EVENT DATE: 20141103
